FAERS Safety Report 23845712 (Version 1)
Quarter: 2024Q2

REPORT INFORMATION
  Report Type: Spontaneous
  Country: US (occurrence: US)
  Receive Date: 20240511
  Receipt Date: 20240511
  Transmission Date: 20240715
  Serious: Yes (Hospitalization, Other)
  Sender: FDA-Public Use
  Company Number: None

PATIENT
  Age: 63 Year
  Sex: Male

DRUGS (3)
  1. RISPERIDONE [Suspect]
     Active Substance: RISPERIDONE
     Indication: Agitation
  2. LORAZEPAM [Suspect]
     Active Substance: LORAZEPAM
     Indication: Agitation
  3. HALOPERIDOL [Suspect]
     Active Substance: HALOPERIDOL
     Indication: Encephalitis autoimmune

REACTIONS (3)
  - Dysphagia [Unknown]
  - Sedation [Recovering/Resolving]
  - Tremor [Unknown]
